FAERS Safety Report 9710713 (Version 1)
Quarter: 2013Q4

REPORT INFORMATION
  Report Type: Spontaneous
  Country: US (occurrence: US)
  Receive Date: 20131126
  Receipt Date: 20131126
  Transmission Date: 20140711
  Serious: No
  Sender: FDA-Public Use
  Company Number: US-BRISTOL-MYERS SQUIBB COMPANY-18937573

PATIENT
  Age: 71 Year
  Sex: Male
  Weight: 96.14 kg

DRUGS (1)
  1. BYETTA [Suspect]
     Dosage: INTAIAL DOSE:5MCG BID
     Dates: end: 2013

REACTIONS (2)
  - Blood glucose increased [Unknown]
  - Weight decreased [Unknown]
